FAERS Safety Report 17976366 (Version 1)
Quarter: 2020Q3

REPORT INFORMATION
  Report Type: Spontaneous
  Country: US (occurrence: US)
  Receive Date: 20200703
  Receipt Date: 20200703
  Transmission Date: 20201103
  Serious: No
  Sender: FDA-Public Use
  Company Number: US-TELIGENT, INC-20200500014

PATIENT
  Sex: Male
  Weight: 62.59 kg

DRUGS (1)
  1. HALOBETASOL PROPIONATE. [Suspect]
     Active Substance: HALOBETASOL PROPIONATE
     Indication: PSORIASIS
     Dosage: NOT MORE THAN ONCE EVERY TWO TO THREE WEEKS (AS ONE APPLICATION MAY FIX)
     Dates: start: 20200502, end: 20200504

REACTIONS (4)
  - Erythema [Unknown]
  - Pain [Unknown]
  - Condition aggravated [Unknown]
  - Drug ineffective [Unknown]
